FAERS Safety Report 21323201 (Version 8)
Quarter: 2024Q1

REPORT INFORMATION
  Report Type: Spontaneous
  Country: US (occurrence: US)
  Receive Date: 20220912
  Receipt Date: 20240327
  Transmission Date: 20240410
  Serious: No
  Sender: FDA-Public Use
  Company Number: US-PFIZER INC-202200796986

PATIENT
  Age: 53 Year
  Sex: Female
  Weight: 68.481 kg

DRUGS (20)
  1. PREMARIN [Suspect]
     Active Substance: ESTROGENS, CONJUGATED
     Indication: Menopausal symptoms
     Dosage: 1 G, DAILY
     Route: 067
     Dates: start: 20200124
  2. PREMARIN [Suspect]
     Active Substance: ESTROGENS, CONJUGATED
     Indication: Urinary tract infection
     Dosage: 0.5 APPLICATOR(S)FUL EVERY DAY)/ INSERT 0.5 MG DAILY
     Route: 067
  3. METHYLCOBALAMIN [Concomitant]
     Active Substance: METHYLCOBALAMIN
     Dosage: UNK
     Dates: start: 20200124
  4. CALCIUM [Concomitant]
     Active Substance: CALCIUM
     Dosage: UNK (500)
     Dates: start: 20200124
  5. ESTRACE [Concomitant]
     Active Substance: ESTRADIOL
     Dosage: 2 G, DAILY
     Dates: start: 20200124
  6. ESTRACE [Concomitant]
     Active Substance: ESTRADIOL
     Dosage: 1 G APPLIED TWO TIMES PER WEEK FOR MAINTENANCE THERAPY
  7. FISH OIL [Concomitant]
     Active Substance: FISH OIL
     Dosage: 1,000 MG (120 MG-180 MG)
     Route: 048
     Dates: start: 20200124
  8. FLUOROURACIL [Concomitant]
     Active Substance: FLUOROURACIL
     Dosage: SUFFICIENT AMOUNT TO COVER THE LESIONS IN THE AFFECTED AREA(S) BY TOPICAL ROUTE 2 TIMES PER DAY
     Route: 061
     Dates: start: 20200124
  9. INTROVALE [Concomitant]
     Active Substance: ETHINYL ESTRADIOL\LEVONORGESTREL
     Indication: Contraception
     Dosage: 1 DF, DAILY
     Route: 048
     Dates: start: 20200124
  10. IRON [Concomitant]
     Active Substance: IRON
     Dosage: UNK
     Route: 048
     Dates: start: 20200124
  11. MACROBID [Concomitant]
     Active Substance: NITROFURANTOIN\NITROFURANTOIN MONOHYDRATE
     Indication: Urinary tract infection
     Dosage: 100 MG, 1 CAPSULE EVERY 12 HOURS WITH FOOD
     Route: 048
     Dates: start: 20200124
  12. MAGNESIUM [Concomitant]
     Active Substance: MAGNESIUM
     Dosage: 500 MG, DAILY
     Route: 048
     Dates: start: 20200124
  13. VITAMIN C [Concomitant]
     Active Substance: ASCORBIC ACID
     Dosage: 500 MG, DAILY
     Route: 048
     Dates: start: 20200124
  14. VITAMIN D3 [Concomitant]
     Active Substance: CHOLECALCIFEROL
     Dosage: UNK
     Dates: start: 20200124
  15. PYRIDIUM [Concomitant]
     Active Substance: PHENAZOPYRIDINE
     Indication: Urinary tract discomfort
     Dosage: 100 MG, 3X/DAY
     Route: 048
  16. QUASENSE [Concomitant]
     Active Substance: ETHINYL ESTRADIOL\LEVONORGESTREL
     Dosage: 1 DF, DAILY (TAKE ONE TABLET DAILY)
     Route: 048
  17. BIOTIN [Concomitant]
     Active Substance: BIOTIN
     Dosage: 5000 UG, DAILY
     Route: 048
  18. VITAMIN D NOS [Concomitant]
     Active Substance: VITAMIN D NOS
     Dosage: 2000 IU
     Route: 048
  19. CRANBERRY [Concomitant]
     Active Substance: CRANBERRY
     Dosage: UNK
     Route: 048
  20. VITAMIN B COMPLEX [Concomitant]
     Active Substance: CYANOCOBALAMIN\DEXPANTHENOL\NIACINAMIDE\PYRIDOXINE HYDROCHLORIDE\RIBOFLAVIN 5^-PHOSPHATE SODIUM\THIA
     Dosage: UNK
     Route: 048

REACTIONS (2)
  - Photosensitivity reaction [Unknown]
  - Off label use [Unknown]

NARRATIVE: CASE EVENT DATE: 20200124
